FAERS Safety Report 7458157-4 (Version None)
Quarter: 2011Q2

REPORT INFORMATION
  Report Type: 
  Country: None (occurrence: None)
  Receive Date: 20110504
  Receipt Date: 20110427
  Transmission Date: 20111010
  Serious: Yes (Other)
  Sender: FDA-Public Use
  Company Number: PHHY2011US36157

PATIENT
  Age: 68 Year
  Sex: Female

DRUGS (6)
  1. TYLENOL-500 [Concomitant]
  2. PAROXETINE HCL [Concomitant]
     Dosage: 20 MG 2 X DAY
  3. DILTIAZEM [Concomitant]
     Dosage: 240 MG 1X DAY
  4. PROPRANOLOL [Concomitant]
     Dosage: 40 MG
  5. RECLAST [Suspect]
     Dosage: 5 MG, UNK
     Route: 042
  6. LISINOPRIL [Concomitant]
     Dosage: 5 MG 2X DAY

REACTIONS (4)
  - BONE SWELLING [None]
  - INFECTION [None]
  - TOOTH LOSS [None]
  - PAIN IN JAW [None]
